FAERS Safety Report 8414199-3 (Version None)
Quarter: 2012Q2

REPORT INFORMATION
  Report Type: 
  Country: None (occurrence: None)
  Receive Date: 20120605
  Receipt Date: 20120529
  Transmission Date: 20120825
  Serious: Yes (Other)
  Sender: FDA-Public Use
  Company Number: GB-B.I. PHARMACEUTICALS,INC./RIDGEFIELD-2012-UK-00720UK

PATIENT
  Age: 82 Year
  Sex: Male

DRUGS (5)
  1. PRADAXA [Suspect]
     Indication: TRANSIENT ISCHAEMIC ATTACK
  2. ATORVASTATIN CALCIUM [Concomitant]
     Dosage: 80 MG
     Route: 048
     Dates: end: 20120503
  3. FUROSEMIDE [Concomitant]
     Dosage: 40 MG
     Route: 048
     Dates: end: 20120503
  4. PRADAXA [Suspect]
     Indication: ATRIAL FIBRILLATION
     Dosage: 75 MG
     Route: 048
     Dates: end: 20120503
  5. BISOPROLOL FUMARATE [Concomitant]
     Dosage: 5 MG
     Route: 048
     Dates: end: 20120503

REACTIONS (2)
  - LIVER FUNCTION TEST ABNORMAL [None]
  - HEPATITIS [None]
